FAERS Safety Report 9396932 (Version 1)
Quarter: 2013Q3

REPORT INFORMATION
  Report Type: Spontaneous
  Country: US (occurrence: US)
  Receive Date: 20130712
  Receipt Date: 20130712
  Transmission Date: 20140515
  Serious: No
  Sender: FDA-Public Use
  Company Number: US-B.I. PHARMACEUTICALS,INC./RIDGEFIELD-2013-BI-19626PF

PATIENT
  Sex: Female

DRUGS (8)
  1. SPIRIVA [Suspect]
  2. CELECOXIB [Suspect]
     Indication: FIBROMYALGIA
     Dosage: 100 MG
     Route: 048
     Dates: start: 20110408
  3. CELEXA [Concomitant]
     Dosage: 40M
  4. HYDROXYZINE [Concomitant]
     Dosage: 30 MG
  5. ATIVAN [Concomitant]
     Dosage: 0.5 MG
  6. NEURONTIN [Concomitant]
     Dosage: 2200MG/DAY
  7. NORCO [Concomitant]
     Dosage: DAILY DOSE : 10/325
  8. SOMA [Concomitant]
     Dosage: 350 MG

REACTIONS (12)
  - Drug hypersensitivity [Unknown]
  - Addison^s disease [Unknown]
  - Haemorrhage [Unknown]
  - Haematuria [Unknown]
  - Proteinuria [Unknown]
  - Abdominal discomfort [Unknown]
  - Blister [Unknown]
  - Excoriation [Unknown]
  - Growth retardation [Unknown]
  - Weight decreased [Unknown]
  - Drug ineffective [Unknown]
  - Abdominal discomfort [Unknown]
